FAERS Safety Report 9848738 (Version 1)
Quarter: 2013Q4

REPORT INFORMATION
  Report Type: Spontaneous
  Country: US (occurrence: None)
  Receive Date: 20131226
  Receipt Date: 20131226
  Transmission Date: 20140711
  Serious: Yes (Other)
  Sender: FDA-Public Use
  Company Number: PHEH2013US013718

PATIENT
  Sex: 0

DRUGS (9)
  1. TEKTURNA [Suspect]
     Dates: start: 20081006
  2. ALPRAZOLAM (ALPRAZOLAM) [Concomitant]
  3. CITALOPRAM (CITALOPRAM) [Concomitant]
  4. FLUNISOLIDE (FLUNISOLIDE) [Concomitant]
  5. METOPROLOL TARTRATE (METOPROLOL TARTRATE) [Concomitant]
  6. LORATADINE (LORATADINE) (LORATADINE) [Concomitant]
  7. OMEPRAZOLE (OMEPRAZOLE) [Concomitant]
  8. SPIRONOLACTONE (SPIRONOLACTONE) [Concomitant]
  9. HYDROCHLOROTHIAZIDE (HYDROCHLOROTHIAZIDE) [Concomitant]

REACTIONS (3)
  - Proteinuria [None]
  - Diabetic nephropathy [None]
  - Fatigue [None]
